FAERS Safety Report 17440174 (Version 5)
Quarter: 2020Q3

REPORT INFORMATION
  Report Type: Spontaneous
  Country: US (occurrence: US)
  Receive Date: 20200220
  Receipt Date: 20200713
  Transmission Date: 20201102
  Serious: Yes (Other)
  Sender: FDA-Public Use
  Company Number: NVSC2020US043400

PATIENT
  Age: 72 Year
  Sex: Female

DRUGS (2)
  1. BEOVU [Suspect]
     Active Substance: BROLUCIZUMAB-DBLL
     Dosage: 6 MG, PRN (AS NEEDED SINGLE DOSE)
     Route: 047
     Dates: start: 20200123
  2. BEOVU [Suspect]
     Active Substance: BROLUCIZUMAB-DBLL
     Indication: NEOVASCULAR AGE-RELATED MACULAR DEGENERATION
     Dosage: 6 MG, PRN (AS NEEDED SINGLE DOSE)
     Route: 047
     Dates: start: 20191219

REACTIONS (10)
  - Retinal perivascular sheathing [Not Recovered/Not Resolved]
  - Eye inflammation [Unknown]
  - Vitreal cells [Not Recovered/Not Resolved]
  - Retinal vasculitis [Unknown]
  - Visual field defect [Not Recovered/Not Resolved]
  - Vitritis [Not Recovered/Not Resolved]
  - Blindness [Unknown]
  - Retinal exudates [Not Recovered/Not Resolved]
  - Retinal artery occlusion [Not Recovered/Not Resolved]
  - Visual acuity reduced [Unknown]

NARRATIVE: CASE EVENT DATE: 20200210
